FAERS Safety Report 16005406 (Version 1)
Quarter: 2019Q1

REPORT INFORMATION
  Report Type: Spontaneous
  Country: US (occurrence: US)
  Receive Date: 20190226
  Receipt Date: 20190226
  Transmission Date: 20190418
  Serious: Yes (Death)
  Sender: FDA-Public Use
  Company Number: None

PATIENT
  Sex: Male

DRUGS (8)
  1. HYDROCORTISONE 10 MG TABLETS [Concomitant]
     Dates: start: 20190130, end: 20190225
  2. HUMIRA [Suspect]
     Active Substance: ADALIMUMAB
     Indication: PRODUCT USED FOR UNKNOWN INDICATION
     Dosage: ?          OTHER FREQUENCY:EVERY OTHER WEEK;?
     Route: 058
  3. SPIRONOLACTONE 25 MG TABLETS [Concomitant]
     Dates: start: 20190119, end: 20190225
  4. BUMETANIDE 2 MG TABLETS [Concomitant]
     Dates: start: 20190117, end: 20190225
  5. POTASSIUM CL MICRO TAB 20 MEQ [Concomitant]
     Dates: start: 20180905, end: 20190225
  6. CLOPIDOGREL 75MG TABLETS [Concomitant]
     Dates: start: 20181019, end: 20190225
  7. MEGESTROL AC SUS 40MG/ML [Concomitant]
     Active Substance: MEGESTROL ACETATE
     Dates: start: 20190129, end: 20190225
  8. XARELTO 20 MG TABLETS [Concomitant]
     Dates: start: 20180625, end: 20190225

REACTIONS (1)
  - Death [None]
